FAERS Safety Report 8061733-1 (Version None)
Quarter: 2012Q1

REPORT INFORMATION
  Report Type: 
  Country: None (occurrence: None)
  Receive Date: 20120123
  Receipt Date: 20111005
  Transmission Date: 20120608
  Serious: Yes (Hospitalization)
  Sender: FDA-Public Use
  Company Number: US-BIOGENIDEC-2011BI015104

PATIENT
  Age: 50 Year
  Sex: Female

DRUGS (1)
  1. TYSABRI [Suspect]
     Indication: MULTIPLE SCLEROSIS
     Route: 042
     Dates: start: 20080626, end: 20100625

REACTIONS (2)
  - DECREASED IMMUNE RESPONSIVENESS [None]
  - BRONCHOPNEUMONIA [None]
